FAERS Safety Report 8383272-0 (Version None)
Quarter: 2012Q2

REPORT INFORMATION
  Report Type: 
  Country: None (occurrence: None)
  Receive Date: 20120524
  Receipt Date: 20120522
  Transmission Date: 20120825
  Serious: Yes (Hospitalization)
  Sender: FDA-Public Use
  Company Number: US-BAYER-2012-041966

PATIENT
  Age: 39 Year
  Sex: Female
  Weight: 68 kg

DRUGS (5)
  1. CELEXA [Concomitant]
  2. XOPENEX [Concomitant]
     Dosage: UNK UNK, QD
  3. MIRENA [Suspect]
     Indication: CONTRACEPTION
     Dosage: 20 MCG/24HR, CONT
     Route: 015
     Dates: start: 20090825
  4. ALBUTEROL [Concomitant]
  5. OMEPRAZOLE [Concomitant]
     Dosage: UNK UNK, QD

REACTIONS (5)
  - DEVICE DISLOCATION [None]
  - BREAST TENDERNESS [None]
  - VAGINAL HAEMORRHAGE [None]
  - ECTOPIC PREGNANCY [None]
  - DEVICE DIFFICULT TO USE [None]
